FAERS Safety Report 13434479 (Version 1)
Quarter: 2017Q2

REPORT INFORMATION
  Report Type: Spontaneous
  Country: BR (occurrence: BR)
  Receive Date: 20170413
  Receipt Date: 20170413
  Transmission Date: 20170830
  Serious: Yes (Other)
  Sender: FDA-Public Use
  Company Number: BR-GUERBET-BR-20170099

PATIENT
  Age: 61 Year
  Sex: Male
  Weight: 72 kg

DRUGS (2)
  1. LIPIODOL ULTRA-FLUIDE [Suspect]
     Active Substance: ETHIODIZED OIL
     Indication: PORTAL VEIN EMBOLISATION
     Route: 042
     Dates: start: 20160921, end: 20160921
  2. HISTOACRYL [Suspect]
     Active Substance: ENBUCRILATE
     Indication: PORTAL VEIN EMBOLISATION
     Route: 042
     Dates: start: 20160921, end: 20160921

REACTIONS (2)
  - Off label use [Recovered/Resolved]
  - Biloma [Recovered/Resolved]

NARRATIVE: CASE EVENT DATE: 20160921
